FAERS Safety Report 8871630 (Version 2)
Quarter: 2013Q2

REPORT INFORMATION
  Report Type: Spontaneous
  Country: US (occurrence: None)
  Receive Date: 20120426
  Receipt Date: 20121031
  Transmission Date: 20140414
  Serious: No
  Sender: FDA-Public Use
  Company Number: PHEH2012US002680

PATIENT
  Age: 42 Year
  Sex: Female

DRUGS (4)
  1. GILENYA [Suspect]
     Indication: MULTIPLE SCLEROSIS
     Route: 048
     Dates: start: 20110921
  2. CYMBALTA (DULOXETINE HYDROCHLORIDE) [Concomitant]
  3. LOESTRIN (ETHINYLESTRADIOL, NORETHISTERONE ACETATE) [Concomitant]
  4. SUMATRIPTAN (SUMATRIPTAN) [Concomitant]

REACTIONS (8)
  - Rash [None]
  - Head discomfort [None]
  - Oropharyngeal pain [None]
  - Rhinorrhoea [None]
  - Nasopharyngitis [None]
  - Cough [None]
  - Dyspnoea [None]
  - Heart rate decreased [None]
